FAERS Safety Report 20939061 (Version 2)
Quarter: 2023Q1

REPORT INFORMATION
  Report Type: Spontaneous
  Country: US (occurrence: US)
  Receive Date: 20220609
  Receipt Date: 20230221
  Transmission Date: 20230418
  Serious: No
  Sender: FDA-Public Use
  Company Number: US-BAYER-2022A080587

PATIENT
  Age: 54 Year
  Sex: Female

DRUGS (2)
  1. ESTRADIOL HEMIHYDRATE [Suspect]
     Active Substance: ESTRADIOL HEMIHYDRATE
     Dosage: 1 PATCH, ONCE A WEEK
     Route: 062
  2. ESTRADIOL HEMIHYDRATE [Suspect]
     Active Substance: ESTRADIOL HEMIHYDRATE
     Dosage: UNK

REACTIONS (5)
  - Nausea [Recovered/Resolved]
  - Migraine [Recovered/Resolved]
  - Adverse reaction [Recovered/Resolved]
  - Device adhesion issue [None]
  - Incorrect dose administered [None]

NARRATIVE: CASE EVENT DATE: 20220101
